FAERS Safety Report 5914688-7 (Version None)
Quarter: 2008Q4

REPORT INFORMATION
  Report Type: 
  Country: None (occurrence: None)
  Receive Date: 20081010
  Receipt Date: 20080930
  Transmission Date: 20090506
  Serious: Yes (Other)
  Sender: FDA-Public Use
  Company Number: US-JNJFOC-20081000113

PATIENT
  Sex: Male

DRUGS (13)
  1. INTELENCE [Suspect]
     Indication: HIV INFECTION
  2. ISENTRESS [Suspect]
     Indication: HIV INFECTION
     Route: 065
  3. FUZEON [Concomitant]
     Indication: HIV INFECTION
  4. TRUVADA [Concomitant]
     Indication: HIV INFECTION
  5. DAPSONE [Concomitant]
     Indication: HIV INFECTION
  6. AZITHROMYCIN [Concomitant]
  7. ZOFRAN [Concomitant]
  8. MARINOL [Concomitant]
  9. AMITIZA [Concomitant]
  10. XANAX [Concomitant]
  11. ZYRTEC [Concomitant]
  12. ADVAIT [Concomitant]
     Indication: HAEMOPHILIA
  13. PERCOCET [Concomitant]

REACTIONS (1)
  - HAEMORRHAGE [None]
